FAERS Safety Report 24891400 (Version 4)
Quarter: 2025Q1

REPORT INFORMATION
  Report Type: Spontaneous
  Country: JP (occurrence: JP)
  Receive Date: 20250127
  Receipt Date: 20250311
  Transmission Date: 20250409
  Serious: Yes (Other)
  Sender: KYOWA
  Company Number: JP-KYOWAKIRIN-2025KK001139

PATIENT

DRUGS (1)
  1. POTELIGEO [Suspect]
     Active Substance: MOGAMULIZUMAB-KPKC
     Indication: Adult T-cell lymphoma/leukaemia
     Route: 065

REACTIONS (9)
  - Lupus nephritis [Recovering/Resolving]
  - Thrombotic microangiopathy [Recovered/Resolved]
  - Renal failure [Recovering/Resolving]
  - Condition aggravated [Recovering/Resolving]
  - Red blood cell schistocytes [Recovered/Resolved]
  - Hypocomplementaemia [Recovered/Resolved]
  - Thrombocytopenia [Not Recovered/Not Resolved]
  - Bone marrow failure [Unknown]
  - Anaemia [Recovered/Resolved]

NARRATIVE: CASE EVENT DATE: 20221228
